FAERS Safety Report 14402935 (Version 6)
Quarter: 2018Q2

REPORT INFORMATION
  Report Type: Spontaneous
  Country: US (occurrence: US)
  Receive Date: 20180117
  Receipt Date: 20180604
  Transmission Date: 20180711
  Serious: Yes (Hospitalization)
  Sender: FDA-Public Use
  Company Number: US-PFIZER INC-2017529119

PATIENT
  Age: 40 Year
  Sex: Female

DRUGS (3)
  1. ELELYSO [Suspect]
     Active Substance: TALIGLUCERASE ALFA
     Dosage: UNK
     Dates: start: 20180327
  2. ELELYSO [Suspect]
     Active Substance: TALIGLUCERASE ALFA
     Indication: GAUCHER^S DISEASE
     Dosage: UNK
     Dates: end: 20171107
  3. ELELYSO [Suspect]
     Active Substance: TALIGLUCERASE ALFA
     Dosage: UNK, 2X/WEEK
     Dates: start: 201803

REACTIONS (7)
  - Cystitis [Recovered/Resolved]
  - Oral pain [Not Recovered/Not Resolved]
  - Malaise [Not Recovered/Not Resolved]
  - Dreamy state [Not Recovered/Not Resolved]
  - Pyrexia [Unknown]
  - Bone pain [Unknown]
  - Somnolence [Not Recovered/Not Resolved]

NARRATIVE: CASE EVENT DATE: 2011
